FAERS Safety Report 8958720 (Version 1)
Quarter: 2012Q4

REPORT INFORMATION
  Report Type: Spontaneous
  Country: KR (occurrence: None)
  Receive Date: 20121128
  Receipt Date: 20121128
  Transmission Date: 20130627
  Serious: Yes (Other)
  Sender: FDA-Public Use
  Company Number: B0846734A

PATIENT
  Age: 49 Year
  Sex: Male

DRUGS (2)
  1. EPIVIR HBV [Suspect]
     Indication: ANTIVIRAL PROPHYLAXIS
  2. CANCER CHEMOTHERAPY [Concomitant]

REACTIONS (1)
  - Withdrawal hepatitis [None]
